FAERS Safety Report 8508796-4 (Version None)
Quarter: 2012Q3

REPORT INFORMATION
  Report Type: 
  Country: None (occurrence: None)
  Receive Date: 20120713
  Receipt Date: 20120704
  Transmission Date: 20120928
  Serious: Yes (Other)
  Sender: FDA-Public Use
  Company Number: US-JNJFOC-20120407758

PATIENT
  Sex: Female
  Weight: 81.65 kg

DRUGS (70)
  1. REMICADE [Suspect]
     Route: 042
     Dates: start: 20080811
  2. REMICADE [Suspect]
     Route: 042
     Dates: start: 20100108
  3. REMICADE [Suspect]
     Route: 042
     Dates: start: 20080630
  4. REMICADE [Suspect]
     Route: 042
     Dates: start: 20090522
  5. REMICADE [Suspect]
     Route: 042
     Dates: start: 20111014
  6. REMICADE [Suspect]
     Route: 042
     Dates: start: 20091026
  7. REMICADE [Suspect]
     Route: 042
     Dates: start: 20100305
  8. REMICADE [Suspect]
     Route: 042
     Dates: start: 20110225
  9. REMICADE [Suspect]
     Route: 042
     Dates: start: 20110819
  10. REMICADE [Suspect]
     Indication: RHEUMATOID ARTHRITIS
     Route: 042
     Dates: start: 20080519
  11. REMICADE [Suspect]
     Route: 042
     Dates: start: 20080811
  12. REMICADE [Suspect]
     Route: 042
     Dates: start: 20081205
  13. REMICADE [Suspect]
     Route: 042
     Dates: start: 20110624
  14. AMOXICILLIN [Concomitant]
     Dosage: 4 TABLETS ALL AT ONCE, 1 HOUR BEFORE ANY DENTAL OR SURGICAL PROCEDURE
     Route: 048
  15. MULTI-VITAMINS [Concomitant]
     Route: 048
  16. FLAX SEED OIL [Concomitant]
     Route: 048
  17. GARLIC [Concomitant]
     Route: 048
  18. ASPIRIN [Concomitant]
     Route: 065
  19. REMICADE [Suspect]
     Route: 042
     Dates: start: 20090130
  20. REMICADE [Suspect]
     Route: 042
     Dates: start: 20100903
  21. REMICADE [Suspect]
     Route: 042
     Dates: start: 20110624
  22. REMICADE [Suspect]
     Route: 042
     Dates: start: 20091026
  23. REMICADE [Suspect]
     Route: 042
     Dates: start: 20101217
  24. CALCIUM [Concomitant]
     Route: 048
  25. REMICADE [Suspect]
     Route: 042
     Dates: start: 20090831
  26. REMICADE [Suspect]
     Route: 042
     Dates: start: 20090130
  27. REMICADE [Suspect]
     Route: 042
     Dates: start: 20090327
  28. REMICADE [Suspect]
     Route: 042
     Dates: start: 20100108
  29. REMICADE [Suspect]
     Route: 042
     Dates: start: 20100629
  30. REMICADE [Suspect]
     Route: 042
     Dates: start: 20110225
  31. REMICADE [Suspect]
     Route: 042
     Dates: start: 20111209
  32. METHOTREXATE [Concomitant]
     Dosage: ALL TABLETS AT ONCE IN AM ON FRIDAY
     Route: 048
  33. NORCO [Concomitant]
     Indication: PAIN
     Dosage: DOSE: 5/325; 1 IN AM, 1 BEFORE BED AS NEEDED
     Route: 065
  34. REMICADE [Suspect]
     Route: 042
     Dates: start: 20090619
  35. REMICADE [Suspect]
     Route: 042
     Dates: start: 20100403
  36. REMICADE [Suspect]
     Route: 042
     Dates: start: 20100629
  37. REMICADE [Suspect]
     Route: 042
     Dates: start: 20101217
  38. REMICADE [Suspect]
     Route: 042
     Dates: start: 20111209
  39. REMICADE [Suspect]
     Dosage: TOTAL OF 27 INFUSIONS
     Route: 042
     Dates: start: 20120330
  40. REMICADE [Suspect]
     Route: 042
     Dates: start: 20090831
  41. REMICADE [Suspect]
     Route: 042
     Dates: start: 20110218
  42. REMICADE [Suspect]
     Route: 042
     Dates: start: 20110819
  43. LISINOPRIL [Concomitant]
     Indication: HYPERTENSION
     Route: 048
  44. UNKNOWN MEDICATION [Concomitant]
     Indication: PAIN
     Dosage: 5/325MG
     Route: 048
  45. FUROSEMIDE [Concomitant]
     Dosage: 0.5 TABLET IN MORNING
     Route: 048
  46. SULFASALAZINE [Concomitant]
     Dosage: 2 TABLETS AT 11:00 AM AND 2 AT 16:00 HOURS
     Route: 048
  47. FOLIC ACID [Concomitant]
     Route: 048
  48. REMICADE [Suspect]
     Route: 042
     Dates: start: 20090327
  49. REMICADE [Suspect]
     Route: 042
     Dates: start: 20101025
  50. REMICADE [Suspect]
     Route: 042
     Dates: start: 20100903
  51. REMICADE [Suspect]
     Route: 042
     Dates: start: 20101025
  52. REMICADE [Suspect]
     Route: 042
     Dates: start: 20120203
  53. REMICADE [Suspect]
     Route: 042
     Dates: start: 20080630
  54. REMICADE [Suspect]
     Route: 042
     Dates: start: 20081205
  55. REMICADE [Suspect]
     Route: 042
     Dates: start: 20110218
  56. REMICADE [Suspect]
     Route: 042
     Dates: start: 20111014
  57. REMICADE [Suspect]
     Route: 042
     Dates: start: 20120203
  58. REMICADE [Suspect]
     Route: 042
     Dates: start: 20080519
  59. REMICADE [Suspect]
     Route: 042
     Dates: start: 20100403
  60. REMICADE [Suspect]
     Dosage: TOTAL OF 27 INFUSIONS
     Route: 042
     Dates: start: 20120330
  61. JANUVIA [Concomitant]
     Route: 048
  62. ACETAMINOPHEN [Concomitant]
     Indication: PAIN
     Route: 048
  63. REMICADE [Suspect]
     Indication: COLITIS
     Route: 042
     Dates: start: 20080602
  64. REMICADE [Suspect]
     Route: 042
     Dates: start: 20081006
  65. REMICADE [Suspect]
     Route: 042
     Dates: start: 20090522
  66. REMICADE [Suspect]
     Route: 042
     Dates: start: 20081006
  67. REMICADE [Suspect]
     Route: 042
     Dates: start: 20090619
  68. REMICADE [Suspect]
     Route: 042
     Dates: start: 20100305
  69. REMICADE [Suspect]
     Route: 042
     Dates: start: 20080602
  70. IRON [Concomitant]
     Route: 048

REACTIONS (7)
  - WEIGHT INCREASED [None]
  - VASCULITIS [None]
  - INFUSION RELATED REACTION [None]
  - THERMAL BURN [None]
  - PAIN IN EXTREMITY [None]
  - SKIN REACTION [None]
  - CHILLS [None]
